FAERS Safety Report 10213668 (Version 1)
Quarter: 2014Q2

REPORT INFORMATION
  Report Type: Report from Study
  Country: US (occurrence: US)
  Receive Date: 20140603
  Receipt Date: 20140603
  Transmission Date: 20141212
  Serious: Yes (Other)
  Sender: FDA-Public Use
  Company Number: US-SA-2014SA070679

PATIENT
  Sex: Male

DRUGS (2)
  1. APIDRA [Suspect]
     Indication: DIABETES MELLITUS
     Route: 065
  2. LANTUS [Suspect]
     Indication: DIABETES MELLITUS
     Route: 065

REACTIONS (6)
  - Embolism [Unknown]
  - Loss of consciousness [Unknown]
  - Contusion [Unknown]
  - Lung disorder [Unknown]
  - Gastric disorder [Unknown]
  - Arteriosclerosis coronary artery [Unknown]
